FAERS Safety Report 23623595 (Version 1)
Quarter: 2024Q1

REPORT INFORMATION
  Report Type: Spontaneous
  Country: IT (occurrence: IT)
  Receive Date: 20240312
  Receipt Date: 20240312
  Transmission Date: 20240410
  Serious: Yes (Other)
  Sender: FDA-Public Use
  Company Number: None

PATIENT
  Age: 25 Year
  Sex: Female

DRUGS (1)
  1. MISOPROSTOL [Suspect]
     Active Substance: MISOPROSTOL
     Dosage: 200 MG (200 MG X 2)
     Route: 048
     Dates: start: 20231204, end: 20231204

REACTIONS (3)
  - Product administration error [Recovered/Resolved]
  - Maternal exposure during pregnancy [Recovered/Resolved]
  - Uterine hypertonus [Recovered/Resolved]

NARRATIVE: CASE EVENT DATE: 20231204
